FAERS Safety Report 17398861 (Version 1)
Quarter: 2020Q1

REPORT INFORMATION
  Report Type: Spontaneous
  Country: US (occurrence: US)
  Receive Date: 20200210
  Receipt Date: 20200210
  Transmission Date: 20200409
  Serious: No
  Sender: FDA-Public Use
  Company Number: US-BIOMARINAP-US-2019-127573

PATIENT
  Age: 9 Year
  Sex: Female
  Weight: 30.39 kg

DRUGS (1)
  1. VIMIZIM [Suspect]
     Active Substance: ELOSULFASE ALFA
     Indication: PRODUCT USED FOR UNKNOWN INDICATION
     Dosage: 55 MILLIGRAM, QW
     Route: 042

REACTIONS (5)
  - Body temperature increased [Unknown]
  - Abdominal pain upper [Unknown]
  - Palpitations [Recovered/Resolved]
  - Heart rate increased [Unknown]
  - Product dose omission [Unknown]

NARRATIVE: CASE EVENT DATE: 20191217
